FAERS Safety Report 8835227 (Version 1)
Quarter: 2012Q4

REPORT INFORMATION
  Report Type: 
  Country: GB (occurrence: GB)
  Receive Date: 20121011
  Receipt Date: 20121011
  Transmission Date: 20130627
  Serious: Yes (Other)
  Sender: FDA-Public Use
  Company Number: GB-PFIZER INC-2012246065

PATIENT
  Age: 64 Year
  Sex: Female
  Weight: 76 kg

DRUGS (4)
  1. IRINOTECAN HCL [Suspect]
     Indication: CHEMOTHERAPY
     Route: 065
  2. FLUOROURACIL [Suspect]
     Indication: CHEMOTHERAPY
     Dosage: UNK
     Route: 065
  3. ELOXATIN [Suspect]
     Indication: CHEMOTHERAPY
     Dosage: 85 mg infusion
     Dates: start: 20080220, end: 20080319
  4. FOLINIC ACID [Suspect]
     Indication: CHEMOTHERAPY
     Route: 065

REACTIONS (8)
  - Dyspnoea [Unknown]
  - Neuropathy peripheral [Unknown]
  - Febrile neutropenia [Unknown]
  - Pyrexia [Unknown]
  - Laryngospasm [Unknown]
  - Dyspepsia [Unknown]
  - Constipation [Unknown]
  - Lethargy [Unknown]
